FAERS Safety Report 24858698 (Version 1)
Quarter: 2025Q1

REPORT INFORMATION
  Report Type: Other
  Country: US (occurrence: US)
  Receive Date: 20250118
  Receipt Date: 20250118
  Transmission Date: 20250409
  Serious: Yes (Death, Other)
  Sender: KNIGHT THERAPEUTICS
  Company Number: US-Knight Therapeutics (USA) Inc.-2169267

PATIENT
  Age: 18 Year
  Sex: Female

DRUGS (5)
  1. IMPAVIDO [Suspect]
     Active Substance: MILTEFOSINE
     Indication: Encephalitis bacterial
     Dates: start: 20160618
  2. AMPHOTERICIN B [Concomitant]
     Active Substance: AMPHOTERICIN B
     Dates: start: 20160618
  3. RIFAMPIN [Concomitant]
     Active Substance: RIFAMPIN
     Dates: start: 20160618
  4. AZITHROMYCIN MONOHYDRATE [Concomitant]
     Active Substance: AZITHROMYCIN MONOHYDRATE
  5. FLUCONAZOLE [Concomitant]
     Active Substance: FLUCONAZOLE
     Dates: start: 20160618

REACTIONS (2)
  - Drug ineffective for unapproved indication [Fatal]
  - Off label use [Unknown]
